FAERS Safety Report 12550532 (Version 1)
Quarter: 2016Q3

REPORT INFORMATION
  Report Type: Report from Study
  Country: US (occurrence: US)
  Receive Date: 20160712
  Receipt Date: 20160712
  Transmission Date: 20161109
  Serious: Yes (Hospitalization, Other)
  Sender: FDA-Public Use
  Company Number: US-VERTEX PHARMACEUTICALS-2016-001590

PATIENT
  Age: 18 Year
  Sex: Female

DRUGS (1)
  1. ORKAMBI [Suspect]
     Active Substance: IVACAFTOR\LUMACAFTOR
     Indication: CYSTIC FIBROSIS
     Dosage: 200/125 MG, BID
     Route: 048
     Dates: start: 20150802

REACTIONS (7)
  - Pulmonary function test decreased [Recovering/Resolving]
  - Sinus operation [Unknown]
  - Osteoporosis [Unknown]
  - Blood glucose decreased [Recovering/Resolving]
  - Wrist fracture [Unknown]
  - Pneumonia [Unknown]
  - Tonsillectomy [Unknown]

NARRATIVE: CASE EVENT DATE: 201508
